FAERS Safety Report 18483258 (Version 2)
Quarter: 2020Q4

REPORT INFORMATION
  Report Type: Spontaneous
  Country: AU (occurrence: AU)
  Receive Date: 20201110
  Receipt Date: 20201216
  Transmission Date: 20210114
  Serious: Yes (Hospitalization, Other)
  Sender: FDA-Public Use
  Company Number: AU-VISTAPHARM, INC.-VER202011-001949

PATIENT
  Age: 22 Year
  Sex: Male

DRUGS (8)
  1. VECURONIUM [Concomitant]
     Active Substance: VECURONIUM BROMIDE
     Indication: SEDATION
     Dosage: UNKNOWN
     Route: 065
  2. PITRESSIN [Concomitant]
     Active Substance: VASOPRESSIN
     Indication: DIABETES INSIPIDUS
     Dosage: UNKNOWN
     Route: 042
  3. SODIUM CHLORIDE. [Concomitant]
     Active Substance: SODIUM CHLORIDE
     Indication: BLOOD SODIUM ABNORMAL
     Dosage: 20%
     Route: 042
  4. MIDAZOLAM. [Concomitant]
     Active Substance: MIDAZOLAM
     Indication: SEDATION
     Dosage: UNKNOWN
     Route: 065
  5. METOCLOPRAMIDE. [Suspect]
     Active Substance: METOCLOPRAMIDE
     Indication: IMPAIRED GASTRIC EMPTYING
     Dosage: 10 MG
     Route: 042
  6. MORPHINE [Concomitant]
     Active Substance: MORPHINE
     Indication: SEDATION
     Dosage: UNKNOWN
     Route: 065
  7. NOREPINEPHRINE. [Concomitant]
     Active Substance: NOREPINEPHRINE
     Indication: CEREBRAL HYPOPERFUSION
     Dosage: 10 TO 15 MCG KG/L/HOUR
     Route: 042
  8. PHENYTOIN. [Concomitant]
     Active Substance: PHENYTOIN
     Indication: SEIZURE PROPHYLAXIS
     Dosage: UNKNOWN
     Route: 065

REACTIONS (2)
  - Mean arterial pressure decreased [Recovered/Resolved]
  - Intracranial pressure increased [Recovered/Resolved]
